FAERS Safety Report 8104817-1 (Version None)
Quarter: 2012Q1

REPORT INFORMATION
  Report Type: 
  Country: None (occurrence: None)
  Receive Date: 20120130
  Receipt Date: 20120116
  Transmission Date: 20120608
  Serious: Yes (Other)
  Sender: FDA-Public Use
  Company Number: DSU-2012-00405

PATIENT
  Age: 54 Year
  Sex: Male

DRUGS (2)
  1. DISGRASIL (ORLISTAT) [Concomitant]
  2. OLMESARTAN MEDOXOMIL [Suspect]
     Indication: HYPERTENSION
     Dosage: 40 MG (QD), PER ORAL
     Route: 048
     Dates: start: 20070101

REACTIONS (2)
  - ABDOMINOPLASTY [None]
  - WEIGHT DECREASED [None]
